FAERS Safety Report 4424489-7 (Version None)
Quarter: 2004Q3

REPORT INFORMATION
  Report Type: 
  Country: None (occurrence: None)
  Receive Date: 20040812
  Receipt Date: 20040802
  Transmission Date: 20050211
  Serious: Yes (Other)
  Sender: FDA-Public Use
  Company Number: 371590

PATIENT
  Sex: Male

DRUGS (1)
  1. DILATREND [Suspect]
     Dosage: 25MG PER DAY
     Route: 048

REACTIONS (2)
  - CUTANEOUS VASCULITIS [None]
  - LIVIDITY [None]
